FAERS Safety Report 6123561-3 (Version None)
Quarter: 2009Q1

REPORT INFORMATION
  Report Type: 
  Country: None (occurrence: None)
  Receive Date: 20090319
  Receipt Date: 20090309
  Transmission Date: 20090719
  Serious: Yes (Hospitalization)
  Sender: FDA-Public Use
  Company Number: DE-RANBAXY-2009RR-22609

PATIENT
  Age: 84 Year
  Sex: Female
  Weight: 58 kg

DRUGS (6)
  1. METOPROLOL TARTRATE [Suspect]
     Indication: HYPERTENSION
     Dosage: 12.5 MG, QD
     Route: 048
     Dates: end: 20020210
  2. PENTALONG [Suspect]
     Indication: ANGINA PECTORIS
     Dosage: 40 MG, BID
     Route: 048
  3. RAMICARD [Suspect]
     Indication: HYPERTENSION
     Dosage: 2.5 MG, QD
     Route: 048
  4. PIRACETAM [Suspect]
     Indication: DEMENTIA
     Dosage: 1200 MG, BID
     Route: 048
  5. GLIBEN HEXAL [Concomitant]
     Indication: TYPE 2 DIABETES MELLITUS
     Dosage: 3.5 MG, QD
     Route: 048
  6. GLUCOBAY [Concomitant]
     Indication: TYPE 2 DIABETES MELLITUS
     Dosage: 50 MG, BID
     Route: 048

REACTIONS (1)
  - SYNCOPE [None]
